FAERS Safety Report 7712202-7 (Version None)
Quarter: 2011Q3

REPORT INFORMATION
  Report Type: 
  Country: None (occurrence: None)
  Receive Date: 20110826
  Receipt Date: 20110819
  Transmission Date: 20111222
  Serious: Yes (Hospitalization)
  Sender: FDA-Public Use
  Company Number: FR-SANOFI-AVENTIS-2011SA053113

PATIENT
  Age: 53 Year
  Sex: Male

DRUGS (2)
  1. TAXOTERE [Suspect]
     Route: 042
     Dates: end: 20110310
  2. CISPLATIN [Suspect]
     Route: 042
     Dates: end: 20110310

REACTIONS (1)
  - LEUKOENCEPHALOPATHY [None]
